FAERS Safety Report 5827084-8 (Version None)
Quarter: 2008Q3

REPORT INFORMATION
  Report Type: 
  Country: None (occurrence: None)
  Receive Date: 20080729
  Receipt Date: 20080729
  Transmission Date: 20090109
  Serious: No
  Sender: FDA-Public Use
  Company Number: None

PATIENT
  Sex: Female
  Weight: 82.1011 kg

DRUGS (2)
  1. XOPENEX HFA [Suspect]
     Indication: ASTHMA
     Dosage: 2 PUFFS ORALLY EVERY 6 HOURS AS NEEDED INHAL
     Route: 055
     Dates: start: 20080404, end: 20080725
  2. XOPENEX HFA [Suspect]
     Indication: CHRONIC OBSTRUCTIVE PULMONARY DISEASE
     Dosage: 2 PUFFS ORALLY EVERY 6 HOURS AS NEEDED INHAL
     Route: 055
     Dates: start: 20080404, end: 20080725

REACTIONS (9)
  - BLOOD PRESSURE INCREASED [None]
  - DRUG HYPERSENSITIVITY [None]
  - FLUID RETENTION [None]
  - HEART RATE INCREASED [None]
  - MALAISE [None]
  - MUSCULAR WEAKNESS [None]
  - RASH [None]
  - TINNITUS [None]
  - TREMOR [None]
